FAERS Safety Report 7518328-5 (Version None)
Quarter: 2011Q2

REPORT INFORMATION
  Report Type: 
  Country: None (occurrence: None)
  Receive Date: 20110602
  Receipt Date: 20081216
  Transmission Date: 20111010
  Serious: Yes (Other)
  Sender: FDA-Public Use
  Company Number: US-BAYER-200943388NA

PATIENT
  Sex: Male
  Weight: 109 kg

DRUGS (23)
  1. PLAVIX [Concomitant]
     Dosage: 75 MG, UNK
     Route: 048
     Dates: start: 20020424
  2. RED BLOOD CELLS [Concomitant]
     Dosage: 2 U, CARDIOPULMONARY BYPASS PUMP
     Route: 042
     Dates: start: 20040920, end: 20040920
  3. ACETYLSALICYLIC ACID SRT [Concomitant]
     Dosage: 325 MG EVERY EVENING
     Route: 048
  4. CLINDAMYCIN [Concomitant]
     Dosage: 600 MG, UNK
     Route: 042
     Dates: start: 20040920, end: 20040920
  5. MANNITOL [Concomitant]
     Dosage: 25 GRAMS, CARDIOPULMONARY BYPASS PUMP
     Dates: start: 20040920, end: 20040920
  6. TRASYLOL [Suspect]
     Indication: CARDIAC OPERATION
     Dosage: 200 ML
     Route: 042
     Dates: start: 20040920, end: 20040920
  7. FUROSEMIDE [Concomitant]
     Dosage: 20 MG, QD
     Route: 048
  8. HEPARIN [Concomitant]
     Dosage: 25,000 UNITS
     Route: 042
     Dates: start: 20040920, end: 20040920
  9. TRASYLOL [Suspect]
     Indication: STERNOTOMY
     Dosage: 1 CC
     Route: 042
     Dates: start: 20040920, end: 20040920
  10. LISINOPRIL [Concomitant]
     Dosage: 40 MG, QD
     Route: 048
     Dates: start: 20020719
  11. LEVOPHED [Concomitant]
     Dosage: .01-.03 MG/KG/MINUTE
     Route: 042
     Dates: start: 20040920, end: 20040926
  12. HEPARIN [Concomitant]
     Dosage: 5000 UNITS, CARDIOPULMONARY BYPASS PUMP
     Dates: start: 20040920, end: 20040920
  13. TRASYLOL [Suspect]
     Dosage: 2.0 MILLION KIU, CARDIOPULMONARY BYPASS PUMP
     Route: 042
     Dates: start: 20040920, end: 20040920
  14. LIPITOR [Concomitant]
     Dosage: 20 MG EVERY EVENING
     Route: 048
     Dates: start: 20020509
  15. NEURONTIN [Concomitant]
     Dosage: UNK
     Route: 048
     Dates: start: 20081216
  16. LOVENOX [Concomitant]
     Dosage: 40 MG, UNK
     Route: 058
     Dates: start: 20040915, end: 20040920
  17. VERSED [Concomitant]
     Dosage: 8 MG, UNK
     Route: 042
     Dates: start: 20040920, end: 20040920
  18. PROTAMINE SULFATE [Concomitant]
     Dosage: 300 MG, UNK
     Route: 042
     Dates: start: 20040920, end: 20040920
  19. TOPROL-XL [Concomitant]
     Dosage: 25 MG EVERY EVENING
     Route: 048
     Dates: start: 20020424
  20. VERSED [Concomitant]
     Dosage: 2 MG, UNK
     Route: 042
     Dates: start: 20040920, end: 20040920
  21. ALBUMIN (HUMAN) [Concomitant]
     Dosage: 25 G, CARDIOPULMONARY BYPASS PUMP
  22. NOVOLIN [INSULIN] [Concomitant]
     Dosage: 10 U, UNK
     Route: 042
     Dates: start: 20040920, end: 20040920
  23. PLATELETS [Concomitant]
     Dosage: 1 U, UNK
     Route: 042
     Dates: start: 20040920, end: 20040920

REACTIONS (10)
  - INJURY [None]
  - FEAR [None]
  - RENAL INJURY [None]
  - PAIN [None]
  - STRESS [None]
  - ANHEDONIA [None]
  - RENAL FAILURE [None]
  - RENAL IMPAIRMENT [None]
  - UNEVALUABLE EVENT [None]
  - ANXIETY [None]
